FAERS Safety Report 7386207-2 (Version None)
Quarter: 2011Q1

REPORT INFORMATION
  Report Type: 
  Country: None (occurrence: None)
  Receive Date: 20110331
  Receipt Date: 20101221
  Transmission Date: 20110831
  Serious: Yes (Hospitalization, Other)
  Sender: FDA-Public Use
  Company Number: US-BAYER-201027780NA

PATIENT
  Sex: Female
  Weight: 67.273 kg

DRUGS (2)
  1. YASMIN [Suspect]
     Indication: ORAL CONTRACEPTION
     Route: 048
     Dates: start: 20080801, end: 20100301
  2. OCELLA [Suspect]
     Indication: ORAL CONTRACEPTION
     Route: 048
     Dates: start: 20080801, end: 20100301

REACTIONS (16)
  - CHOLECYSTECTOMY [None]
  - ABDOMINAL DISCOMFORT [None]
  - CHORIORETINOPATHY [None]
  - BLOOD CHOLESTEROL INCREASED [None]
  - OVARIAN CYST RUPTURED [None]
  - CHOLELITHIASIS [None]
  - ABDOMINAL PAIN LOWER [None]
  - ABDOMINAL PAIN [None]
  - NAUSEA [None]
  - WEIGHT INCREASED [None]
  - APPENDICITIS [None]
  - VOMITING [None]
  - ABDOMINAL PAIN UPPER [None]
  - BILIARY COLIC [None]
  - VAGINAL HAEMORRHAGE [None]
  - SCOTOMA [None]
